FAERS Safety Report 4625903-4 (Version None)
Quarter: 2005Q1

REPORT INFORMATION
  Report Type: 
  Country: None (occurrence: None)
  Receive Date: 20050330
  Receipt Date: 20050321
  Transmission Date: 20050727
  Serious: Yes (Death, Hospitalization, Other)
  Sender: FDA-Public Use
  Company Number: 2005035124

PATIENT
  Age: 64 Year
  Sex: Male
  Weight: 64.4108 kg

DRUGS (21)
  1. BEXTRA [Suspect]
     Indication: ILL-DEFINED DISORDER
     Dosage: 30 MG (10 MG, 3 IN 1 D), ORAL
     Route: 048
  2. CELEBREX [Suspect]
     Indication: ILL-DEFINED DISORDER
     Dosage: 100 MG (100 MG, 1 IN 1 D), ORAL
     Route: 048
     Dates: end: 20040308
  3. NIZATIDINE [Concomitant]
  4. PHENYLPROPANOLAMINE HCL [Concomitant]
  5. CIMETIDINE [Concomitant]
  6. RANITIDINE(RANITIDINDE) [Concomitant]
  7. HYDROXYZINE [Concomitant]
  8. IBUPROFEN [Concomitant]
  9. AMOXICILLIN [Concomitant]
  10. AMITRIPTYLINE HCL [Concomitant]
  11. RANITIDINE HYDROCHLORIDE [Concomitant]
  12. DIMETICONE, ACTIVATED (SIMETICONE) [Concomitant]
  13. ......... [Concomitant]
  14. PRAZOSIN GITS [Concomitant]
  15. INDAPAMIDE (NDAPAMIDE) [Concomitant]
  16. INDOMETHACIN [Concomitant]
  17. DOXYCYCLINE [Concomitant]
  18. CEFALEXIN MONOHYDRATE (CEWFALEXIN MONOHYDRATE) [Concomitant]
  19. LISINOPRIL [Concomitant]
  20. URISED (ATROPINE SULFATE, BENZOIC ACID, GELSEMIUM, HYOSCYAMINE, METHEN [Concomitant]
  21. CIPROFLOXACIN [Concomitant]

REACTIONS (8)
  - CEREBROVASCULAR ACCIDENT [None]
  - DEAFNESS [None]
  - DYSARTHRIA [None]
  - DYSPNOEA [None]
  - INFLUENZA [None]
  - LUNG NEOPLASM MALIGNANT [None]
  - PULMONARY OEDEMA [None]
  - UNEVALUABLE EVENT [None]
